FAERS Safety Report 9461652 (Version 2)
Quarter: 2013Q4

REPORT INFORMATION
  Report Type: Report from Study
  Country: NL (occurrence: NL)
  Receive Date: 20130816
  Receipt Date: 20131024
  Transmission Date: 20140711
  Serious: Yes (Hospitalization)
  Sender: FDA-Public Use
  Company Number: NL-JNJFOC-20130803515

PATIENT
  Age: 65 Year
  Sex: Female
  Weight: 85 kg

DRUGS (4)
  1. ABIRATERONE ACETATE [Suspect]
     Route: 048
  2. ABIRATERONE ACETATE [Suspect]
     Indication: BREAST CANCER METASTATIC
     Route: 048
     Dates: start: 20130710, end: 20130805
  3. PREDNISOLONE [Suspect]
     Indication: BREAST CANCER METASTATIC
     Route: 048
     Dates: start: 20130710
  4. EXEMESTANE [Suspect]
     Indication: BREAST CANCER METASTATIC
     Route: 048
     Dates: start: 20130710, end: 20130805

REACTIONS (1)
  - Vomiting [Recovered/Resolved]
